FAERS Safety Report 17510214 (Version 3)
Quarter: 2020Q2

REPORT INFORMATION
  Report Type: Spontaneous
  Country: US (occurrence: US)
  Receive Date: 20200306
  Receipt Date: 20200629
  Transmission Date: 20200713
  Serious: Yes (Hospitalization)
  Sender: FDA-Public Use
  Company Number: US-PFIZER INC-2020098416

PATIENT
  Age: 58 Year
  Sex: Female
  Weight: 78.46 kg

DRUGS (2)
  1. NICOTROL [Suspect]
     Active Substance: NICOTINE
     Indication: NICOTINE DEPENDENCE
     Dosage: 10 MG/ML (AS DIRECTED)
  2. NICOTROL [Suspect]
     Active Substance: NICOTINE
     Indication: SMOKING CESSATION THERAPY
     Dosage: 80 SPRAYS, NO MORE THAN 80 SPRAYS PER DAY FOR 8 WEEKS, THEN TAPER DOWN OVER 6 WEEKS

REACTIONS (4)
  - Emotional disorder [Recovered/Resolved]
  - Product dispensing error [Unknown]
  - Road traffic accident [Recovered/Resolved]
  - Memory impairment [Recovered/Resolved]
